FAERS Safety Report 5550876-X (Version None)
Quarter: 2007Q4

REPORT INFORMATION
  Report Type: 
  Country: None (occurrence: None)
  Receive Date: 20071210
  Receipt Date: 20071122
  Transmission Date: 20080405
  Serious: Yes (Hospitalization)
  Sender: FDA-Public Use
  Company Number: S07-FRA-06159-01

PATIENT
  Age: 78 Year
  Sex: Male

DRUGS (3)
  1. ESCITALOPRAM [Suspect]
     Dates: start: 20071114, end: 20071117
  2. ARTANE [Suspect]
     Dosage: 2 MG QD PO
     Route: 048
     Dates: start: 20071114, end: 20071117
  3. LASIX [Concomitant]

REACTIONS (3)
  - DRUG INTERACTION [None]
  - MEMORY IMPAIRMENT [None]
  - TREMOR [None]
